FAERS Safety Report 13765920 (Version 1)
Quarter: 2017Q3

REPORT INFORMATION
  Report Type: Spontaneous
  Country: ES (occurrence: ES)
  Receive Date: 20170718
  Receipt Date: 20170718
  Transmission Date: 20171127
  Serious: Yes (Life-Threatening)
  Sender: FDA-Public Use
  Company Number: ES-009507513-1707ESP004591

PATIENT
  Age: 92 Year
  Sex: Female

DRUGS (1)
  1. TESAVEL [Suspect]
     Active Substance: SITAGLIPTIN PHOSPHATE
     Dosage: DAILY DOSE: 100 MG (100MG, 1 IN 24HR)
     Route: 048
     Dates: start: 20130308, end: 20170601

REACTIONS (1)
  - Pancreatic neuroendocrine tumour [Not Recovered/Not Resolved]

NARRATIVE: CASE EVENT DATE: 20170601
